FAERS Safety Report 15457734 (Version 2)
Quarter: 2018Q4

REPORT INFORMATION
  Report Type: Report from Study
  Country: US (occurrence: US)
  Receive Date: 20181003
  Receipt Date: 20181019
  Transmission Date: 20190204
  Serious: Yes (Hospitalization)
  Sender: FDA-Public Use
  Company Number: US-VIFOR (INTERNATIONAL) INC.-VIT-2018-03701

PATIENT
  Age: 53 Year
  Sex: Male
  Weight: 99.43 kg

DRUGS (12)
  1. CALCITRIOL. [Concomitant]
     Active Substance: CALCITRIOL
  2. GLIPIZIDE. [Concomitant]
     Active Substance: GLIPIZIDE
  3. LOSARTAN POTASSIUM. [Concomitant]
     Active Substance: LOSARTAN POTASSIUM
  4. CARVEDILOL. [Concomitant]
     Active Substance: CARVEDILOL
  5. VELTASSA [Suspect]
     Active Substance: PATIROMER
     Dosage: HALF PACKET
     Route: 048
     Dates: start: 201803
  6. VITAMIN D [Concomitant]
     Active Substance: CHOLECALCIFEROL
  7. VELTASSA [Suspect]
     Active Substance: PATIROMER
     Indication: HYPERKALAEMIA
     Route: 048
     Dates: start: 20180209
  8. FUROSEMIDE. [Concomitant]
     Active Substance: FUROSEMIDE
  9. VELTASSA [Suspect]
     Active Substance: PATIROMER
     Route: 048
     Dates: start: 20180309
  10. NIFEDIPINE. [Concomitant]
     Active Substance: NIFEDIPINE
  11. ATORVASTATIN [Concomitant]
     Active Substance: ATORVASTATIN
  12. MINOXIDIL. [Concomitant]
     Active Substance: MINOXIDIL

REACTIONS (3)
  - Nephrolithiasis [Recovered/Resolved]
  - Constipation [Recovered/Resolved]
  - Product use issue [Recovered/Resolved]

NARRATIVE: CASE EVENT DATE: 201803
